FAERS Safety Report 17571101 (Version 1)
Quarter: 2020Q1

REPORT INFORMATION
  Report Type: Spontaneous
  Country: US (occurrence: US)
  Receive Date: 20200323
  Receipt Date: 20200323
  Transmission Date: 20200409
  Serious: Yes (Other)
  Sender: FDA-Public Use
  Company Number: NVSC2020US080889

PATIENT
  Age: 52 Year
  Sex: Female

DRUGS (4)
  1. ETOPOSIDE. [Suspect]
     Active Substance: ETOPOSIDE
     Indication: GALLBLADDER CANCER
     Dosage: UNK, CYCLIC, 6 CYCLES
     Route: 065
  2. NIVOLUMAB [Suspect]
     Active Substance: NIVOLUMAB
     Indication: GALLBLADDER CANCER
     Dosage: 3 MG/KG, CYCLIC
     Route: 065
  3. CARBOPLATIN. [Suspect]
     Active Substance: CARBOPLATIN
     Indication: GALLBLADDER CANCER
     Dosage: UNK, CYCLIC, 6 CYCLES
     Route: 065
  4. IPILIMUMAB [Suspect]
     Active Substance: IPILIMUMAB
     Indication: GALLBLADDER CANCER
     Dosage: 1 MG/KG, CYCLIC
     Route: 065

REACTIONS (2)
  - Product use in unapproved indication [Unknown]
  - Neutropenic sepsis [Recovered/Resolved]
